FAERS Safety Report 10230625 (Version 1)
Quarter: 2014Q2

REPORT INFORMATION
  Report Type: Spontaneous
  Country: IT (occurrence: IT)
  Receive Date: 20140611
  Receipt Date: 20140611
  Transmission Date: 20141212
  Serious: Yes (Other)
  Sender: FDA-Public Use
  Company Number: IT-WATSON-2014-11919

PATIENT
  Age: 72 Year
  Sex: Male

DRUGS (2)
  1. DIPYRIDAMOLE (UNKNOWN) [Suspect]
     Indication: SINGLE PHOTON EMISSION COMPUTERISED TOMOGRAM
     Dosage: UNKNOWN
     Route: 065
  2. THALLIUM-201 [Concomitant]
     Indication: SINGLE PHOTON EMISSION COMPUTERISED TOMOGRAM
     Dosage: UNKNOWN
     Route: 065

REACTIONS (2)
  - Steal syndrome [Unknown]
  - Myocardial ischaemia [Unknown]
